FAERS Safety Report 23638502 (Version 1)
Quarter: 2024Q1

REPORT INFORMATION
  Report Type: Spontaneous
  Country: US (occurrence: US)
  Receive Date: 20240315
  Receipt Date: 20240315
  Transmission Date: 20240410
  Serious: Yes (Life-Threatening, Other)
  Sender: FDA-Public Use
  Company Number: US-BRACCO-2024US01032

PATIENT
  Age: 74 Year
  Sex: Male

DRUGS (1)
  1. ISOVUE 300 [Suspect]
     Active Substance: IOPAMIDOL
     Indication: Carotid artery stent insertion
     Dosage: 140 ML, SINGLE
     Route: 013

REACTIONS (5)
  - Contrast encephalopathy [Recovered/Resolved]
  - Status epilepticus [Recovered/Resolved]
  - Blindness transient [Recovered/Resolved]
  - Nausea [Unknown]
  - Vomiting [Unknown]
